FAERS Safety Report 22319902 (Version 1)
Quarter: 2023Q2

REPORT INFORMATION
  Report Type: Spontaneous
  Country: US (occurrence: US)
  Receive Date: 20230515
  Receipt Date: 20230515
  Transmission Date: 20230722
  Serious: No
  Sender: FDA-Public Use
  Company Number: US-VERTEX PHARMACEUTICALS-2023-006778

PATIENT
  Sex: Female

DRUGS (2)
  1. TRIKAFTA [Suspect]
     Active Substance: ELEXACAFTOR\IVACAFTOR\TEZACAFTOR
     Indication: Cystic fibrosis
     Dosage: UNKNOWN
     Route: 048
  2. DESOGESTREL [Suspect]
     Active Substance: DESOGESTREL
     Indication: Hormone level abnormal
     Dosage: UNKNOWN
     Route: 065

REACTIONS (3)
  - Hormone level abnormal [Recovered/Resolved]
  - Menstrual disorder [Unknown]
  - Intermenstrual bleeding [Recovered/Resolved]
